FAERS Safety Report 23358079 (Version 4)
Quarter: 2024Q2

REPORT INFORMATION
  Report Type: Spontaneous
  Country: US (occurrence: US)
  Receive Date: 20240102
  Receipt Date: 20240618
  Transmission Date: 20240716
  Serious: No
  Sender: FDA-Public Use
  Company Number: US-BRISTOL-MYERS SQUIBB COMPANY-2024-000509

PATIENT
  Age: 88 Year
  Sex: Male
  Weight: 92.99 kg

DRUGS (2)
  1. POMALYST [Suspect]
     Active Substance: POMALIDOMIDE
     Indication: Plasma cell myeloma
     Route: 048
  2. POMALYST [Suspect]
     Active Substance: POMALIDOMIDE
     Route: 048

REACTIONS (6)
  - Product dose omission issue [Unknown]
  - Therapy interrupted [Unknown]
  - Insurance issue [Unknown]
  - Dizziness [Unknown]
  - Dyspnoea [Unknown]
  - Hyperhidrosis [Unknown]
